FAERS Safety Report 6671953-6 (Version None)
Quarter: 2010Q2

REPORT INFORMATION
  Report Type: 
  Country: None (occurrence: None)
  Receive Date: 20100407
  Receipt Date: 20100331
  Transmission Date: 20101027
  Serious: Yes (Other)
  Sender: FDA-Public Use
  Company Number: RU-AMGEN-KDC402961

PATIENT
  Sex: Male

DRUGS (1)
  1. PANITUMUMAB [Suspect]
     Indication: SQUAMOUS CELL CARCINOMA
     Route: 042
     Dates: start: 20100330

REACTIONS (3)
  - HEART RATE INCREASED [None]
  - HYPERCALCAEMIA [None]
  - HYPOTENSION [None]
